FAERS Safety Report 8436224-6 (Version None)
Quarter: 2012Q2

REPORT INFORMATION
  Report Type: 
  Country: None (occurrence: None)
  Receive Date: 20120614
  Receipt Date: 20120605
  Transmission Date: 20120825
  Serious: No
  Sender: FDA-Public Use
  Company Number: AU-SANOFI-AVENTIS-2012SA037372

PATIENT
  Age: 34 Year
  Sex: Female

DRUGS (4)
  1. ETANERCEPT [Concomitant]
     Route: 058
     Dates: end: 20120501
  2. VITAMIN D [Concomitant]
  3. FISH OIL [Concomitant]
  4. ARAVA [Suspect]
     Indication: RHEUMATOID ARTHRITIS
     Route: 048
     Dates: start: 20090601, end: 20111201

REACTIONS (1)
  - MATERNAL EXPOSURE DURING PREGNANCY [None]
